FAERS Safety Report 14850931 (Version 4)
Quarter: 2018Q3

REPORT INFORMATION
  Report Type: Report from Study
  Country: TH (occurrence: TH)
  Receive Date: 20180506
  Receipt Date: 20180817
  Transmission Date: 20181010
  Serious: Yes (Death, Other)
  Sender: FDA-Public Use
  Company Number: TH-AMGEN-THASP2018060023

PATIENT
  Age: 64 Year
  Sex: Female

DRUGS (2)
  1. KYPROLIS [Suspect]
     Active Substance: CARFILZOMIB
     Dosage: 27 MG/M2, ON OTHER DAY
     Route: 065
  2. KYPROLIS [Suspect]
     Active Substance: CARFILZOMIB
     Indication: PLASMA CELL MYELOMA
     Dosage: 20 MG/M2,  ON DAY 1
     Route: 065

REACTIONS (2)
  - Tumour lysis syndrome [Unknown]
  - Death [Fatal]

NARRATIVE: CASE EVENT DATE: 20180501
